FAERS Safety Report 4854259-7 (Version None)
Quarter: 2005Q4

REPORT INFORMATION
  Report Type: 
  Country: None (occurrence: None)
  Receive Date: 20051215
  Receipt Date: 20051205
  Transmission Date: 20060501
  Serious: Yes (Other)
  Sender: FDA-Public Use
  Company Number: US-JNJFOC-20050106096

PATIENT
  Sex: Male
  Weight: 97.52 kg

DRUGS (4)
  1. INFLIXIMAB [Suspect]
     Indication: CROHN'S DISEASE
     Route: 042
  2. MESALAMINE [Concomitant]
     Indication: CROHN'S DISEASE
  3. BUDESONIDE [Concomitant]
     Indication: CROHN'S DISEASE
  4. NARCOTIC ANALGESICS [Concomitant]
     Indication: CROHN'S DISEASE

REACTIONS (1)
  - PROSTATE CANCER [None]
